FAERS Safety Report 8729965 (Version 2)
Quarter: 2015Q2

REPORT INFORMATION
  Report Type: Report from Study
  Country: US (occurrence: US)
  Receive Date: 20120817
  Receipt Date: 20150402
  Transmission Date: 20150821
  Serious: Yes (Hospitalization)
  Sender: FDA-Public Use
  Company Number: US-ROCHE-1100509

PATIENT
  Sex: Male

DRUGS (11)
  1. ACETYLSALICYLIC ACID [Concomitant]
     Active Substance: ASPIRIN
     Route: 048
  2. HEPARIN [Concomitant]
     Active Substance: HEPARIN SODIUM
     Route: 065
  3. HEPARIN [Concomitant]
     Active Substance: HEPARIN SODIUM
     Route: 065
  4. ACTIVASE [Suspect]
     Active Substance: ALTEPLASE
     Route: 065
  5. ACTIVASE [Suspect]
     Active Substance: ALTEPLASE
     Indication: ACUTE MYOCARDIAL INFARCTION
     Route: 065
  6. NITROGLYCERIN. [Concomitant]
     Active Substance: NITROGLYCERIN
     Route: 042
  7. HEPARIN [Concomitant]
     Active Substance: HEPARIN SODIUM
     Dosage: 70-110
     Route: 065
  8. ACTIVASE [Suspect]
     Active Substance: ALTEPLASE
     Route: 040
  9. ASPIRIN. [Concomitant]
     Active Substance: ASPIRIN
  10. LOPRESSOR [Concomitant]
     Active Substance: METOPROLOL TARTRATE
     Route: 065
  11. DRAMAMINE [Concomitant]
     Active Substance: DIMENHYDRINATE
     Route: 042

REACTIONS (5)
  - Pain in extremity [Unknown]
  - Discomfort [Unknown]
  - Asthenia [Unknown]
  - Ventricular extrasystoles [Unknown]
  - Chest pain [Unknown]
